FAERS Safety Report 19689504 (Version 2)
Quarter: 2021Q3

REPORT INFORMATION
  Report Type: Report from Study
  Country: CA (occurrence: CA)
  Receive Date: 20210811
  Receipt Date: 20210814
  Transmission Date: 20211014
  Serious: Yes (Hospitalization)
  Sender: FDA-Public Use
  Company Number: NVSC2021CA175313

PATIENT
  Age: 41 Year
  Sex: Female

DRUGS (1)
  1. KESIMPTA [Suspect]
     Active Substance: OFATUMUMAB
     Indication: RELAPSING-REMITTING MULTIPLE SCLEROSIS
     Dosage: UNK
     Route: 058
     Dates: start: 20210729

REACTIONS (7)
  - Gait disturbance [Unknown]
  - Heart rate increased [Unknown]
  - Muscle spasms [Unknown]
  - Vomiting [Unknown]
  - Muscular weakness [Unknown]
  - Dysstasia [Unknown]
  - Pyrexia [Unknown]

NARRATIVE: CASE EVENT DATE: 20210729
